FAERS Safety Report 7708119-4 (Version None)
Quarter: 2011Q3

REPORT INFORMATION
  Report Type: 
  Country: None (occurrence: None)
  Receive Date: 20110825
  Receipt Date: 20110817
  Transmission Date: 20111222
  Serious: Yes (Hospitalization)
  Sender: FDA-Public Use
  Company Number: DE-BIOGENIDEC-2011BI031144

PATIENT
  Age: 32 Year
  Sex: Female
  Weight: 100 kg

DRUGS (3)
  1. AVONEX [Suspect]
     Indication: RELAPSING-REMITTING MULTIPLE SCLEROSIS
     Route: 030
     Dates: start: 20090604
  2. PARACETAMOL [Concomitant]
     Indication: PROPHYLAXIS
     Dates: start: 20090604
  3. BERLOSIN [Concomitant]
     Indication: PROPHYLAXIS
     Dates: start: 20110604

REACTIONS (1)
  - OPTIC NEURITIS [None]
